FAERS Safety Report 16088383 (Version 2)
Quarter: 2019Q3

REPORT INFORMATION
  Report Type: Spontaneous
  Country: JP (occurrence: JP)
  Receive Date: 20190319
  Receipt Date: 20190826
  Transmission Date: 20191004
  Serious: Yes (Death, Hospitalization, Other)
  Sender: FDA-Public Use
  Company Number: JP-BRISTOL-MYERS SQUIBB COMPANY-BMS-2019-025414

PATIENT
  Age: 87 Year
  Sex: Male
  Weight: 47 kg

DRUGS (9)
  1. ELIQUIS [Suspect]
     Active Substance: APIXABAN
     Indication: CEREBROVASCULAR ACCIDENT PROPHYLAXIS
     Dosage: 2.5 MILLIGRAM, BID
     Route: 048
     Dates: end: 20190303
  2. URIEF [Concomitant]
     Active Substance: SILODOSIN
     Indication: BRAIN CONTUSION
     Dosage: 8 MILLIGRAM, BID
     Route: 048
     Dates: start: 20190222, end: 20190303
  3. FLECAINIDE ACETATE. [Concomitant]
     Active Substance: FLECAINIDE ACETATE
     Indication: BRAIN CONTUSION
     Dosage: 100 MILLIGRAM, BID
     Route: 048
     Dates: start: 20190222, end: 20190303
  4. AMLODIPINE [AMLODIPINE BESILATE] [Concomitant]
     Active Substance: AMLODIPINE BESYLATE
     Indication: BRAIN CONTUSION
     Dosage: 5 MILLIGRAM, QD
     Route: 048
     Dates: start: 20190222, end: 20190303
  5. FERROSTEC [Concomitant]
     Active Substance: SODIUM FERROUS CITRATE
     Indication: BRAIN CONTUSION
     Dosage: 100 MILLIGRAM, QD
     Route: 048
     Dates: start: 20190222, end: 20190303
  6. ZYTIGA [Concomitant]
     Active Substance: ABIRATERONE ACETATE
     Indication: BRAIN CONTUSION
     Dosage: 1000 MILLIGRAM, QD
     Route: 048
     Dates: start: 20190222, end: 20190303
  7. ROSUVASTATIN OD [Concomitant]
     Indication: BRAIN CONTUSION
     Dosage: 25 MILLIGRAM, QD
     Route: 048
     Dates: start: 20190222, end: 20190303
  8. THYRADIN S [Concomitant]
     Active Substance: LEVOTHYROXINE SODIUM
     Indication: BRAIN CONTUSION
     Dosage: 50 MICROGRAM, QD
     Route: 048
     Dates: start: 20190222, end: 20190303
  9. PREDONINE [Concomitant]
     Active Substance: PREDNISOLONE
     Indication: BRAIN CONTUSION
     Dosage: 10 MILLIGRAM, BID
     Route: 048
     Dates: start: 20190222, end: 20190303

REACTIONS (5)
  - Subdural haematoma [Fatal]
  - Brain contusion [Recovering/Resolving]
  - Fall [Unknown]
  - Haemorrhagic cerebral infarction [Fatal]
  - Cerebral haemorrhage [Fatal]

NARRATIVE: CASE EVENT DATE: 20190220
